FAERS Safety Report 11148541 (Version 1)
Quarter: 2015Q2

REPORT INFORMATION
  Report Type: Spontaneous
  Country: US (occurrence: None)
  Receive Date: 20150528
  Receipt Date: 20150528
  Transmission Date: 20150821
  Serious: Yes (Life-Threatening)
  Sender: FDA-Public Use
  Company Number: None

PATIENT
  Age: 5 Month
  Sex: Female
  Weight: 6.8 kg

DRUGS (2)
  1. ORAJEL NATURALS FAST RELIEF FOR TEETHING PAIN [Concomitant]
     Active Substance: EUGENOL
  2. CVS NIGHTTIME COLD/FLU RELIEF [Suspect]
     Active Substance: ACETAMINOPHEN\DEXTROMETHORPHAN HYDROBROMIDE\DOXYLAMINE SUCCINATE
     Indication: TEETHING
     Dosage: SMALL, PEA-SIZE AMOUNT OF GEL, APPLIED TO A SURFACE USUALLY THE SKIN
     Route: 061
     Dates: start: 20150525, end: 20150525

REACTIONS (7)
  - Pallor [None]
  - Choking [None]
  - Vomiting [None]
  - Hyperhidrosis [None]
  - Dyspnoea [None]
  - Retching [None]
  - Secretion discharge [None]

NARRATIVE: CASE EVENT DATE: 20150525
